FAERS Safety Report 9276008 (Version 1)
Quarter: 2012Q4

REPORT INFORMATION
  Report Type: Spontaneous
  Country: JP (occurrence: None)
  Receive Date: 20121109
  Receipt Date: 20121109
  Transmission Date: 20130627
  Serious: Yes (Other)
  Sender: FDA-Public Use
  Company Number: 2011S1000906

PATIENT
  Sex: Male

DRUGS (1)
  1. CUBICIN (DAPTOMYCIN) [Suspect]
     Route: 042
     Dates: start: 20111206

REACTIONS (1)
  - Ventricular tachycardia [None]
